FAERS Safety Report 23575437 (Version 1)
Quarter: 2024Q1

REPORT INFORMATION
  Report Type: Spontaneous
  Country: US (occurrence: US)
  Receive Date: 20240228
  Receipt Date: 20240228
  Transmission Date: 20240410
  Serious: No
  Sender: FDA-Public Use
  Company Number: US-ABBVIE-5654150

PATIENT
  Sex: Female
  Weight: 72.574 kg

DRUGS (1)
  1. SKYRIZI [Suspect]
     Active Substance: RISANKIZUMAB-RZAA
     Indication: Crohn^s disease
     Dosage: FORM STRENGTH: 360 MG
     Route: 058
     Dates: start: 202201

REACTIONS (4)
  - Incontinence [Not Recovered/Not Resolved]
  - Injection site haemorrhage [Unknown]
  - Diarrhoea [Unknown]
  - Photopsia [Unknown]
